FAERS Safety Report 9775798 (Version 2)
Quarter: 2014Q2

REPORT INFORMATION
  Report Type: Spontaneous
  Country: US (occurrence: US)
  Receive Date: 20131220
  Receipt Date: 20140508
  Transmission Date: 20141212
  Serious: Yes (Hospitalization)
  Sender: FDA-Public Use
  Company Number: US-GLAXOSMITHKLINE-A1034443A

PATIENT
  Sex: Male

DRUGS (1)
  1. AVANDIA [Suspect]
     Indication: DIABETES MELLITUS
     Dosage: 4MG TWICE PER DAY
     Route: 048
     Dates: start: 1999

REACTIONS (8)
  - Osteitis deformans [Unknown]
  - Thrombosis [Unknown]
  - Diabetic complication [Unknown]
  - Respiratory disorder [Unknown]
  - Weight increased [Unknown]
  - Fracture [Unknown]
  - Hypertension [Unknown]
  - Cardiac disorder [Unknown]
